FAERS Safety Report 5428856-4 (Version None)
Quarter: 2007Q3

REPORT INFORMATION
  Report Type: 
  Country: None (occurrence: None)
  Receive Date: 20070824
  Receipt Date: 20070810
  Transmission Date: 20080115
  Serious: Yes (Hospitalization)
  Sender: FDA-Public Use
  Company Number: DSM-2007-00599

PATIENT
  Age: 89 Year
  Sex: Female

DRUGS (2)
  1. OLMESARTAN MEDOXOMIL [Suspect]
     Indication: HYPERTENSION
     Dosage: 10 MG (10 MG, 1 IN 1 D), ORAL
     Route: 048
     Dates: start: 20070320, end: 20070428
  2. NEXEN (NIMESULIDE) (100 MILLIGRAM, TABLET) (NIMESULIDE) [Suspect]
     Indication: PAIN
     Dosage: 100 MG (100 MG, 1 IN 1 D), ORAL
     Route: 048
     Dates: start: 20070320, end: 20070428

REACTIONS (4)
  - ANTINUCLEAR ANTIBODY POSITIVE [None]
  - LEUKOCYTOCLASTIC VASCULITIS [None]
  - TOXIC SKIN ERUPTION [None]
  - VASCULAR PURPURA [None]
